FAERS Safety Report 16178433 (Version 1)
Quarter: 2019Q2

REPORT INFORMATION
  Report Type: Spontaneous
  Country: NL (occurrence: NL)
  Receive Date: 20190410
  Receipt Date: 20190410
  Transmission Date: 20190711
  Serious: Yes (Other)
  Sender: FDA-Public Use
  Company Number: NL-ACCORD-120500

PATIENT
  Age: 65 Year
  Sex: Male
  Weight: 81 kg

DRUGS (7)
  1. COLECALCIFEROL [Concomitant]
     Active Substance: CHOLECALCIFEROL
     Dosage: STRENGTH 25 UG
  2. ZINC. [Concomitant]
     Active Substance: ZINC
     Dosage: STRENGTH 3 MG
  3. NOVORAPID [Concomitant]
     Active Substance: INSULIN ASPART
     Dosage: AS REQUIRED
  4. CALCIUM CARBONATE. [Concomitant]
     Active Substance: CALCIUM CARBONATE
     Dosage: STRENGTH 300 MG
  5. MAGNESIUM OXIDE. [Concomitant]
     Active Substance: MAGNESIUM OXIDE
     Dosage: STRENGTH 125 MG
  6. SPIRONOLACTONE. [Suspect]
     Active Substance: SPIRONOLACTONE
     Indication: HYPERTENSION
     Dosage: STRENGTH 25 MG,1 X DAY 25 MG,ALSO RECEIVED 12 MG (12.5 MG PER DAY)
     Dates: start: 20180725, end: 20180813
  7. SALOFALK [AMINOSALICYLIC ACID] [Concomitant]
     Active Substance: AMINOSALICYLIC ACID
     Dosage: 1000MG/DAY

REACTIONS (2)
  - Hyperglycaemia [Recovered/Resolved]
  - Diabetes mellitus inadequate control [Recovered/Resolved]

NARRATIVE: CASE EVENT DATE: 20180802
